FAERS Safety Report 6336314-8 (Version None)
Quarter: 2009Q3

REPORT INFORMATION
  Report Type: 
  Country: None (occurrence: None)
  Receive Date: 20090901
  Receipt Date: 20090824
  Transmission Date: 20100115
  Serious: Yes (Other)
  Sender: FDA-Public Use
  Company Number: US-AMGEN-QUU359438

PATIENT
  Sex: Female
  Weight: 46.8 kg

DRUGS (2)
  1. ENBREL [Suspect]
     Indication: RHEUMATOID ARTHRITIS
     Route: 058
     Dates: start: 20090513
  2. ENBREL [Suspect]
     Indication: PSORIASIS

REACTIONS (9)
  - ANAEMIA [None]
  - BLOOD BLISTER [None]
  - CONTUSION [None]
  - INJECTION SITE HAEMATOMA [None]
  - INJECTION SITE INJURY [None]
  - INJECTION SITE PAIN [None]
  - INJECTION SITE VESICLES [None]
  - MASS [None]
  - WRONG TECHNIQUE IN DRUG USAGE PROCESS [None]
